FAERS Safety Report 9612517 (Version 2)
Quarter: 2014Q1

REPORT INFORMATION
  Report Type: Spontaneous
  Country: DE (occurrence: DE)
  Receive Date: 20131010
  Receipt Date: 20140116
  Transmission Date: 20141002
  Serious: Yes (Other)
  Sender: FDA-Public Use
  Company Number: DE-BAYER-2013-119054

PATIENT
  Age: 46 Year
  Sex: Female
  Weight: 60 kg

DRUGS (2)
  1. AVALOX [Suspect]
     Indication: URINARY TRACT INFECTION
     Dosage: 1 DF, QD
     Route: 048
     Dates: start: 201105
  2. AVALOX [Suspect]
     Indication: URETHRAL ABSCESS
     Dosage: UNK
     Dates: start: 201110

REACTIONS (18)
  - Movement disorder [Recovering/Resolving]
  - Arrhythmia [Recovering/Resolving]
  - Coordination abnormal [Recovering/Resolving]
  - Disturbance in attention [Recovering/Resolving]
  - Memory impairment [Recovering/Resolving]
  - Muscular weakness [Recovering/Resolving]
  - Myalgia [Not Recovered/Not Resolved]
  - Nightmare [Recovering/Resolving]
  - Sleep disorder [Unknown]
  - Suicidal ideation [Recovering/Resolving]
  - Tinnitus [Recovering/Resolving]
  - Visual impairment [Recovering/Resolving]
  - Tendon pain [Not Recovered/Not Resolved]
  - Insomnia [Recovering/Resolving]
  - Dysphagia [Recovering/Resolving]
  - Arthralgia [Recovering/Resolving]
  - Psychotic disorder [Recovering/Resolving]
  - Speech disorder [Recovering/Resolving]
